FAERS Safety Report 9522694 (Version 1)
Quarter: 2013Q3

REPORT INFORMATION
  Report Type: Spontaneous
  Country: US (occurrence: US)
  Receive Date: 20130913
  Receipt Date: 20130913
  Transmission Date: 20140515
  Serious: No
  Sender: FDA-Public Use
  Company Number: US-BAYER-2013-110952

PATIENT
  Age: 45 Year
  Sex: Male
  Weight: 104 kg

DRUGS (5)
  1. ALEVE TABLET [Suspect]
     Indication: RENAL COLIC
     Dosage: 2 DF,AS A FIRST DOSE
     Route: 048
     Dates: start: 20130906
  2. ALEVE TABLET [Suspect]
     Indication: RENAL COLIC
     Dosage: 1 DF, TID
     Route: 048
     Dates: start: 20130906, end: 20130910
  3. TAMSULOSIN [Concomitant]
  4. OXYCODONE [Concomitant]
  5. CIPROFLOXACIN [Concomitant]
     Dosage: 500 MG, UNK

REACTIONS (1)
  - Drug ineffective [None]
